FAERS Safety Report 22979732 (Version 6)
Quarter: 2024Q1

REPORT INFORMATION
  Report Type: Report from Study
  Country: CA (occurrence: CA)
  Receive Date: 20230925
  Receipt Date: 20240202
  Transmission Date: 20240410
  Serious: Yes (Other)
  Sender: FDA-Public Use
  Company Number: CA-SAMSUNG BIOEPIS-SB-2023-25267

PATIENT
  Age: 15 Year
  Sex: Male
  Weight: 59 kg

DRUGS (9)
  1. RENFLEXIS [Suspect]
     Active Substance: INFLIXIMAB-ABDA
     Indication: Crohn^s disease
     Route: 042
     Dates: start: 20230803, end: 20230918
  2. RENFLEXIS [Suspect]
     Active Substance: INFLIXIMAB-ABDA
     Route: 042
     Dates: start: 20230918
  3. RENFLEXIS [Suspect]
     Active Substance: INFLIXIMAB-ABDA
     Route: 042
     Dates: start: 20231012, end: 20231023
  4. RENFLEXIS [Suspect]
     Active Substance: INFLIXIMAB-ABDA
     Dosage: UNKNOWN
     Route: 065
  5. PREDNISONE [Concomitant]
     Active Substance: PREDNISONE
     Indication: Premedication
     Route: 048
  6. ACETAMINOPHEN [Concomitant]
     Active Substance: ACETAMINOPHEN
     Indication: Premedication
     Route: 048
  7. ACETAMINOPHEN [Concomitant]
     Active Substance: ACETAMINOPHEN
     Route: 048
  8. DIPHENHYDRAMINE [Concomitant]
     Active Substance: DIPHENHYDRAMINE
     Indication: Premedication
     Route: 048
  9. SOLU-CORTEF [Concomitant]
     Active Substance: HYDROCORTISONE SODIUM SUCCINATE
     Indication: Premedication
     Dosage: MEDICATION DURING APPOINTMENT, PRN
     Route: 042

REACTIONS (12)
  - Pharyngeal paraesthesia [Recovering/Resolving]
  - Cough [Recovered/Resolved]
  - Feeling hot [Recovering/Resolving]
  - Erythema [Recovered/Resolved]
  - Chest discomfort [Recovering/Resolving]
  - Throat tightness [Recovered/Resolved]
  - Chills [Recovering/Resolving]
  - Pruritus [Recovering/Resolving]
  - Somnolence [Recovered/Resolved]
  - Oropharyngeal discomfort [Recovering/Resolving]
  - Drug specific antibody present [Unknown]
  - Product use issue [Unknown]

NARRATIVE: CASE EVENT DATE: 20230918
